FAERS Safety Report 4988745-6 (Version None)
Quarter: 2006Q2

REPORT INFORMATION
  Report Type: 
  Country: None (occurrence: None)
  Receive Date: 20060426
  Receipt Date: 20060412
  Transmission Date: 20061013
  Serious: Yes (Hospitalization)
  Sender: FDA-Public Use
  Company Number: 2005P1000606

PATIENT
  Age: 63 Year
  Sex: Male
  Weight: 84 kg

DRUGS (10)
  1. RETEPLASE (RETEPLASE) [Suspect]
     Indication: ACUTE MYOCARDIAL INFARCTION
     Dosage: IV
     Route: 042
     Dates: start: 20050113, end: 20050113
  2. REOPRO [Suspect]
     Indication: ACUTE MYOCARDIAL INFARCTION
     Dosage: IV
     Route: 042
     Dates: start: 20050113
  3. TRANDOLAPRIL [Concomitant]
  4. METOPROLOL [Concomitant]
  5. TRIMETAZIDINE [Concomitant]
  6. ASPIRIN [Concomitant]
  7. SIMVASTATIN [Concomitant]
  8. TICLOPIDINE HCL [Concomitant]
  9. METFORMIN [Concomitant]
  10. GLICLAZIDE [Concomitant]

REACTIONS (6)
  - CHOLELITHIASIS [None]
  - HEPATIC STEATOSIS [None]
  - HEPATITIS NON-A NON-B [None]
  - PANCREATIC ENLARGEMENT [None]
  - PYELONEPHRITIS CHRONIC [None]
  - RENAL CYST [None]
